FAERS Safety Report 18656990 (Version 2)
Quarter: 2021Q1

REPORT INFORMATION
  Report Type: Spontaneous
  Country: US (occurrence: US)
  Receive Date: 20201224
  Receipt Date: 20210206
  Transmission Date: 20210419
  Serious: No
  Sender: FDA-Public Use
  Company Number: US-009507513-2012USA009827

PATIENT
  Age: 25 Year
  Sex: Female
  Weight: 187 kg

DRUGS (1)
  1. NEXPLANON [Suspect]
     Active Substance: ETONOGESTREL
     Indication: CONTRACEPTION
     Dosage: 68 MILLIGRAM, ONCE
     Route: 059
     Dates: start: 20190227, end: 20201215

REACTIONS (2)
  - Menometrorrhagia [Unknown]
  - Product use issue [Unknown]

NARRATIVE: CASE EVENT DATE: 20190227
